FAERS Safety Report 19960187 (Version 2)
Quarter: 2021Q4

REPORT INFORMATION
  Report Type: Spontaneous
  Country: PL (occurrence: PL)
  Receive Date: 20211015
  Receipt Date: 20211022
  Transmission Date: 20220303
  Serious: Yes (Life-Threatening, Hospitalization)
  Sender: FDA-Public Use
  Company Number: PL-GE HEALTHCARE LIFE SCIENCES-2021CSU005069

PATIENT

DRUGS (2)
  1. OMNIPAQUE [Suspect]
     Active Substance: IOHEXOL
     Indication: Computerised tomogram thorax
     Dosage: 60 ML, SINGLE
     Route: 042
     Dates: start: 20210922, end: 20210922
  2. OMNIPAQUE [Suspect]
     Active Substance: IOHEXOL
     Indication: Product used for unknown indication

REACTIONS (1)
  - Contrast media allergy [Unknown]

NARRATIVE: CASE EVENT DATE: 20210922
